FAERS Safety Report 24816179 (Version 1)
Quarter: 2025Q1

REPORT INFORMATION
  Report Type: Spontaneous
  Country: CA (occurrence: CA)
  Receive Date: 20250107
  Receipt Date: 20250107
  Transmission Date: 20250409
  Serious: Yes (Death)
  Sender: PFIZER
  Company Number: CA-PFIZER INC-202400239621

PATIENT
  Age: 85 Year
  Sex: Female

DRUGS (15)
  1. RUXIENCE [Suspect]
     Active Substance: RITUXIMAB-PVVR
     Indication: Rheumatoid arthritis
     Route: 042
     Dates: start: 20240816
  2. RUXIENCE [Suspect]
     Active Substance: RITUXIMAB-PVVR
     Route: 042
     Dates: start: 20240831
  3. ACETAMINOPHEN [Concomitant]
     Active Substance: ACETAMINOPHEN
     Indication: Premedication
     Dates: start: 20240816, end: 20240816
  4. NIFEDIPINE [Concomitant]
     Active Substance: NIFEDIPINE
  5. ARAVA [Concomitant]
     Active Substance: LEFLUNOMIDE
  6. APIXABAN [Concomitant]
     Active Substance: APIXABAN
  7. BUPROPION [Concomitant]
     Active Substance: BUPROPION
  8. CITALOPRAM [Concomitant]
     Active Substance: CITALOPRAM
  9. DIPHENHYDRAMINE [Concomitant]
     Active Substance: DIPHENHYDRAMINE
     Indication: Premedication
     Dates: start: 20240816, end: 20240816
  10. IRON [Concomitant]
     Active Substance: IRON
  11. LASIX [Concomitant]
     Active Substance: FUROSEMIDE
  12. METHYLPREDNISOLONE [Concomitant]
     Active Substance: METHYLPREDNISOLONE
     Indication: Premedication
     Dates: start: 20240816, end: 20240816
  13. MYRBETRIQ [Concomitant]
     Active Substance: MIRABEGRON
  14. SPIRONOLACTONE [Concomitant]
     Active Substance: SPIRONOLACTONE
  15. SYNTHROID [Concomitant]
     Active Substance: LEVOTHYROXINE SODIUM

REACTIONS (2)
  - Death [Fatal]
  - Blood pressure fluctuation [Unknown]

NARRATIVE: CASE EVENT DATE: 20240816
